FAERS Safety Report 8007752-2 (Version None)
Quarter: 2011Q4

REPORT INFORMATION
  Report Type: 
  Country: None (occurrence: None)
  Receive Date: 20111227
  Receipt Date: 20110725
  Transmission Date: 20120403
  Serious: No
  Sender: FDA-Public Use
  Company Number: US-ABBOTT-11P-163-0844927-00

PATIENT
  Sex: Male

DRUGS (17)
  1. FLAXSEED OIL [Concomitant]
     Indication: SUPPLEMENTATION THERAPY
  2. GLUCOSAMINE CHONDROITIN [Concomitant]
     Indication: PROPHYLAXIS
  3. FLOMAX [Concomitant]
     Indication: PRODUCT USED FOR UNKNOWN INDICATION
  4. RADIATION THERAPY [Concomitant]
     Indication: PROSTATE CANCER
     Dates: start: 20061201
  5. LUPRON DEPOT [Suspect]
     Indication: PROSTATE CANCER
     Dates: start: 20110712
  6. LUPRON DEPOT [Suspect]
     Dosage: SINGLE DOSE
     Dates: start: 20110319, end: 20110319
  7. LIBRIUM [Concomitant]
     Indication: STRESS
  8. FISH OIL [Concomitant]
     Indication: SUPPLEMENTATION THERAPY
  9. SEED IMPLANTS [Concomitant]
     Indication: PROSTATE CANCER
     Dates: start: 20070101
  10. LIBRIUM [Concomitant]
     Indication: DEPRESSION
  11. VITAMIN D [Concomitant]
     Indication: VITAMIN SUPPLEMENTATION
  12. NAPROXEN SODIUM [Concomitant]
     Indication: ARTHRALGIA
  13. MAGNESIUM ZINC [Concomitant]
     Indication: MINERAL SUPPLEMENTATION
     Dosage: 400/15, ONCE DAILY
  14. LUPRON DEPOT [Suspect]
     Dosage: SINGLE DOSE
     Dates: start: 20070518, end: 20070518
  15. LUPRON DEPOT [Suspect]
     Dosage: SINGLE DOSE
     Dates: start: 20101102, end: 20101102
  16. LUPRON DEPOT [Suspect]
     Dosage: SINGLE DOSE
     Dates: start: 20060720, end: 20060720
  17. GLUCOSAMINE CHONDROITIN [Concomitant]
     Indication: ARTHROPATHY
     Dosage: 1500/1200, ONCE DAILY

REACTIONS (1)
  - PARAESTHESIA [None]
